FAERS Safety Report 5008186-5 (Version None)
Quarter: 2006Q2

REPORT INFORMATION
  Report Type: 
  Country: None (occurrence: None)
  Receive Date: 20060404
  Receipt Date: 20050718
  Transmission Date: 20061013
  Serious: Yes (Hospitalization, Other)
  Sender: FDA-Public Use
  Company Number: 2004082871

PATIENT
  Age: 12 Year
  Sex: Female

DRUGS (3)
  1. GEODON [Suspect]
     Indication: AFFECTIVE DISORDER
     Dosage: 120 MG (40 MG, 2 IN 1 D, ORAL
     Route: 048
     Dates: start: 20041008, end: 20041015
  2. GEODON [Suspect]
     Indication: AGITATION
     Dosage: 120 MG (40 MG, 2 IN 1 D, ORAL
     Route: 048
     Dates: start: 20041008, end: 20041015
  3. GEODON [Suspect]
     Indication: OBESITY
     Dosage: 120 MG (40 MG, 2 IN 1 D, ORAL
     Route: 048
     Dates: start: 20041008, end: 20041015

REACTIONS (3)
  - ELECTROCARDIOGRAM QT CORRECTED INTERVAL PROLONGED [None]
  - MALAISE [None]
  - NAUSEA [None]
